FAERS Safety Report 5051485-1 (Version None)
Quarter: 2006Q3

REPORT INFORMATION
  Report Type: 
  Country: None (occurrence: None)
  Receive Date: 20060711
  Receipt Date: 20060630
  Transmission Date: 20061208
  Serious: Yes (Hospitalization)
  Sender: FDA-Public Use
  Company Number: S06-USA-02125-01

PATIENT
  Age: 83 Year
  Sex: Female

DRUGS (8)
  1. CELEXA [Suspect]
     Indication: DEPRESSION
     Dosage: 20 MG QD; PO
     Route: 048
     Dates: start: 20060518, end: 20060101
  2. DIGOXIN [Suspect]
     Indication: ATRIAL FIBRILLATION
     Dosage: 0.25 MG; QD
     Dates: end: 20060101
  3. DIGOXIN [Suspect]
     Indication: ATRIAL FIBRILLATION
     Dosage: 0.125 MG, TIW
     Dates: start: 20060101
  4. LASIX (FUROSEMEIDE) [Concomitant]
  5. ASPIRIN [Concomitant]
  6. FOSAMAX [Concomitant]
  7. TAMOXIFEN [Concomitant]
  8. METOPROLOL TARTRATE [Concomitant]

REACTIONS (6)
  - ANOREXIA [None]
  - DIZZINESS [None]
  - FALL [None]
  - NAUSEA [None]
  - ORTHOSTATIC HYPOTENSION [None]
  - THERAPEUTIC AGENT TOXICITY [None]
